FAERS Safety Report 4983384-5 (Version None)
Quarter: 2006Q2

REPORT INFORMATION
  Report Type: 
  Country: None (occurrence: None)
  Receive Date: 20060426
  Receipt Date: 20060116
  Transmission Date: 20061013
  Serious: Yes (Hospitalization)
  Sender: FDA-Public Use
  Company Number: US-MERCK-0601USA01937

PATIENT
  Age: 69 Year
  Sex: Male
  Weight: 102 kg

DRUGS (3)
  1. VIOXX [Suspect]
     Indication: PAIN MANAGEMENT
     Route: 048
     Dates: start: 20000101, end: 20031227
  2. VIOXX [Suspect]
     Route: 048
     Dates: start: 20000101, end: 20031227
  3. DYAZIDE [Concomitant]
     Route: 065

REACTIONS (11)
  - ANGINA UNSTABLE [None]
  - CHRONIC OBSTRUCTIVE PULMONARY DISEASE [None]
  - CORONARY ARTERY DISEASE [None]
  - ECCHYMOSIS [None]
  - HAEMATOMA [None]
  - HYPERLIPIDAEMIA [None]
  - HYPERTENSION [None]
  - KNEE OPERATION [None]
  - MYOCARDIAL INFARCTION [None]
  - OSTEOARTHRITIS [None]
  - SUPRAVENTRICULAR EXTRASYSTOLES [None]
